FAERS Safety Report 4869083-9 (Version None)
Quarter: 2005Q4

REPORT INFORMATION
  Report Type: 
  Country: None (occurrence: None)
  Receive Date: 20051219
  Receipt Date: 20051209
  Transmission Date: 20060501
  Serious: No
  Sender: FDA-Public Use
  Company Number: CART-10430

PATIENT
  Age: 41 Year
  Sex: Male
  Weight: 117.9352 kg

DRUGS (1)
  1. CARTICEL [Suspect]
     Indication: KNEE DEFORMITY
     Dosage: 1 NA ONCE IS
     Dates: start: 20020524, end: 20020524

REACTIONS (17)
  - BIOPSY SITE UNSPECIFIED ABNORMAL [None]
  - BONE MARROW OEDEMA [None]
  - CHONDROMALACIA [None]
  - CHONDROPATHY [None]
  - DONOR SITE COMPLICATION [None]
  - EXOSTOSIS [None]
  - JOINT INJURY [None]
  - MOVEMENT DISORDER [None]
  - NUCLEAR MAGNETIC RESONANCE IMAGING ABNORMAL [None]
  - OSTEOARTHRITIS [None]
  - OSTEOSCLEROSIS [None]
  - PAIN [None]
  - PROCEDURAL COMPLICATION [None]
  - STRESS FRACTURE [None]
  - SWELLING [None]
  - SYNOVIAL CYST [None]
  - SYNOVIAL DISORDER [None]
